FAERS Safety Report 9785479 (Version 2)
Quarter: 2014Q1

REPORT INFORMATION
  Report Type: Spontaneous
  Country: DE (occurrence: DE)
  Receive Date: 20131227
  Receipt Date: 20140123
  Transmission Date: 20141002
  Serious: Yes (Hospitalization)
  Sender: FDA-Public Use
  Company Number: DE-BAYER-2013-157112

PATIENT
  Age: 41 Year
  Sex: Female
  Weight: 60 kg

DRUGS (3)
  1. GADOVIST [Suspect]
     Indication: UTERINE LEIOMYOMA
     Dosage: 6 ML, UNK
  2. BUTYLSCOPOLAMIN [Concomitant]
  3. FORTECORTIN [Concomitant]

REACTIONS (4)
  - Urticaria [Recovered/Resolved]
  - Oedema mouth [Recovered/Resolved]
  - Sensation of foreign body [Recovered/Resolved]
  - Sensory disturbance [Recovered/Resolved]
